FAERS Safety Report 8325487-3 (Version None)
Quarter: 2012Q2

REPORT INFORMATION
  Report Type: 
  Country: None (occurrence: None)
  Receive Date: 20120501
  Receipt Date: 20100525
  Transmission Date: 20120825
  Serious: No
  Sender: FDA-Public Use
  Company Number: US-TEVA-2010002403

PATIENT
  Sex: Male
  Weight: 83.99 kg

DRUGS (23)
  1. ZOLOFT [Concomitant]
  2. REQUIP [Concomitant]
  3. NUVIGIL [Suspect]
     Indication: SOMNOLENCE
     Route: 048
     Dates: start: 20100301, end: 20100329
  4. AVODART [Concomitant]
  5. COMBIVENT [Concomitant]
  6. NEXIUM [Concomitant]
  7. TRIMETHOPRIME [Concomitant]
  8. BYSTOLIC [Concomitant]
  9. EXELON [Concomitant]
  10. FUROSEMIDE [Concomitant]
  11. ISOSORBIDE DINITRATE [Concomitant]
  12. LANTUS [Concomitant]
  13. NAMENDA [Concomitant]
  14. WARFARIN SODIUM [Concomitant]
  15. QVAR 40 [Concomitant]
  16. LIPITOR [Concomitant]
  17. NOVOLOG [Concomitant]
  18. PLAVIX [Concomitant]
  19. RANEXA [Concomitant]
  20. LEVOTHYROXINE SODIUM [Concomitant]
  21. NITROLINGUAL [Concomitant]
  22. DIAZEPAM [Concomitant]
  23. FOLIC ACID [Concomitant]

REACTIONS (1)
  - ANGINA PECTORIS [None]
